FAERS Safety Report 7934256-5 (Version None)
Quarter: 2011Q4

REPORT INFORMATION
  Report Type: 
  Country: None (occurrence: None)
  Receive Date: 20111122
  Receipt Date: 20111116
  Transmission Date: 20120403
  Serious: Yes (Other)
  Sender: FDA-Public Use
  Company Number: US-JNJFOC-20111107365

PATIENT
  Sex: Male
  Weight: 88 kg

DRUGS (3)
  1. REMICADE [Suspect]
     Route: 042
     Dates: start: 20100101, end: 20110101
  2. REMICADE [Suspect]
     Indication: CROHN'S DISEASE
     Route: 042
     Dates: start: 20090701, end: 20100101
  3. REMICADE [Suspect]
     Route: 042
     Dates: start: 20111028

REACTIONS (6)
  - ABSCESS [None]
  - HERNIA [None]
  - ABSCESS DRAINAGE [None]
  - DRUG EFFECT DECREASED [None]
  - DECREASED APPETITE [None]
  - FISTULA [None]
